FAERS Safety Report 9360087 (Version 1)
Quarter: 2013Q2

REPORT INFORMATION
  Report Type: Report from Study
  Country: US (occurrence: US)
  Receive Date: 20130621
  Receipt Date: 20130621
  Transmission Date: 20140414
  Serious: Yes (Death, Hospitalization)
  Sender: FDA-Public Use
  Company Number: PHEH2013US012269

PATIENT
  Age: 75 Year
  Sex: Female

DRUGS (3)
  1. GLEEVEC [Suspect]
     Indication: LEUKAEMIA
     Dosage: 1 DF (1 1 TABLET BY MOUTH EVERY DAY)
     Route: 048
     Dates: start: 20130410
  2. GLEEVEC [Suspect]
     Dosage: 1 DF (1 1 TABLET BY MOUTH EVERY DAY)
     Route: 048
  3. MEGESTROL ACETATE [Concomitant]
     Dosage: 40 MG, UNK

REACTIONS (4)
  - Death [Fatal]
  - Nausea [Recovered/Resolved]
  - Vomiting [Recovered/Resolved]
  - Diarrhoea [Recovered/Resolved]
